FAERS Safety Report 9186039 (Version 1)
Quarter: 2013Q1

REPORT INFORMATION
  Report Type: Spontaneous
  Country: US (occurrence: US)
  Receive Date: 20130325
  Receipt Date: 20130325
  Transmission Date: 20140127
  Serious: Yes (Other)
  Sender: FDA-Public Use
  Company Number: US-009507513-1303USA011121

PATIENT
  Sex: Male

DRUGS (2)
  1. JANUMET [Suspect]
     Indication: DIABETES MELLITUS
  2. METFORMIN [Concomitant]

REACTIONS (1)
  - Pancreatitis [Unknown]
